FAERS Safety Report 16561119 (Version 1)
Quarter: 2019Q3

REPORT INFORMATION
  Report Type: Spontaneous
  Country: US (occurrence: US)
  Receive Date: 20190711
  Receipt Date: 20190711
  Transmission Date: 20191004
  Serious: No
  Sender: FDA-Public Use
  Company Number: US-GLAXOSMITHKLINE-US2019123648

PATIENT
  Age: 20 Year
  Sex: Male

DRUGS (1)
  1. FLONASE ALLERGY RELIEF [Suspect]
     Active Substance: FLUTICASONE PROPIONATE
     Indication: HYPERSENSITIVITY
     Dosage: UNK(ONCE EVERY OTHER DAY AND ONE TIME)
     Dates: start: 201906

REACTIONS (2)
  - Epistaxis [Recovering/Resolving]
  - Inappropriate schedule of product administration [Unknown]
